FAERS Safety Report 8932538 (Version 1)
Quarter: 2012Q4

REPORT INFORMATION
  Report Type: Spontaneous
  Country: ES (occurrence: None)
  Receive Date: 20121119
  Receipt Date: 20121119
  Transmission Date: 20130627
  Serious: Yes (Other)
  Sender: FDA-Public Use
  Company Number: 1481759

PATIENT
  Age: 45 Year
  Sex: Female

DRUGS (2)
  1. DOCETAXEL [Suspect]
     Indication: BREAST CANCER
     Dates: start: 20120118, end: 20120118
  2. CARBOPLATIN [Suspect]
     Indication: BREAST CANCER
     Dates: start: 20120118, end: 20120118

REACTIONS (3)
  - Chest discomfort [None]
  - Dyspnoea [None]
  - Flushing [None]
